FAERS Safety Report 9853771 (Version 1)
Quarter: 2014Q1

REPORT INFORMATION
  Report Type: Spontaneous
  Country: US (occurrence: US)
  Receive Date: 20140129
  Receipt Date: 20140129
  Transmission Date: 20141002
  Serious: No
  Sender: FDA-Public Use
  Company Number: US-GLAXOSMITHKLINE-A1026874A

PATIENT
  Sex: Female

DRUGS (5)
  1. BUPROPION [Suspect]
     Indication: DEPRESSION
     Dosage: 300MG UNKNOWN
  2. BUPROPION SR [Suspect]
     Indication: DEPRESSION
  3. PAXIL [Suspect]
     Indication: DEPRESSION
  4. EFFEXOR [Suspect]
     Indication: DEPRESSION
  5. PROZAC [Suspect]
     Indication: DEPRESSION
     Route: 065

REACTIONS (2)
  - Anxiety [Unknown]
  - Panic attack [Unknown]
